FAERS Safety Report 7901798-8 (Version None)
Quarter: 2011Q4

REPORT INFORMATION
  Report Type: 
  Country: None (occurrence: None)
  Receive Date: 20111108
  Receipt Date: 20111104
  Transmission Date: 20120403
  Serious: Yes (Other)
  Sender: FDA-Public Use
  Company Number: PHHY2011US44505

PATIENT
  Sex: Male
  Weight: 63.5 kg

DRUGS (10)
  1. LISINOPRIL [Concomitant]
     Dosage: UNK UKN, UNK
  2. OMEPRAZOLE [Concomitant]
     Dosage: UNK UKN, UNK
  3. REVLIMID [Concomitant]
     Dosage: UNK UKN, UNK
  4. EXJADE [Suspect]
     Indication: MYELODYSPLASTIC SYNDROME
     Dosage: 2500 MG, DAILY
     Route: 048
     Dates: start: 20110114
  5. EXJADE [Suspect]
     Dosage: 2000 MG, DAILY
     Route: 048
  6. BISMUTH SUBSALICYLATE [Concomitant]
     Dosage: UNK UKN, UNK
  7. LORAZEPAM [Concomitant]
     Dosage: UNK UKN, UNK
  8. CALCIUM [Concomitant]
     Dosage: UNK UKN, UNK
  9. GARLIC [Concomitant]
     Dosage: UNK UKN, UNK
  10. DILANTIN [Concomitant]
     Dosage: UNK UKN, UNK

REACTIONS (6)
  - CONSTIPATION [None]
  - DIARRHOEA [None]
  - ASTHENIA [None]
  - ABDOMINAL PAIN UPPER [None]
  - HAEMATOCHEZIA [None]
  - DIZZINESS [None]
